FAERS Safety Report 12227966 (Version 1)
Quarter: 2016Q1

REPORT INFORMATION
  Report Type: Spontaneous
  Country: US (occurrence: None)
  Receive Date: 20160330
  Receipt Date: 20160330
  Transmission Date: 20160526
  Serious: Yes (Other)
  Sender: FDA-Public Use
  Company Number: None

PATIENT
  Age: 61 Year
  Sex: Male

DRUGS (1)
  1. ENBREL [Suspect]
     Active Substance: ETANERCEPT
     Dosage: DATES OF USE: FEB 2017 TO PRESENT
     Route: 058
     Dates: start: 201602

REACTIONS (3)
  - Injection site erythema [None]
  - Pruritus [None]
  - Injection site mass [None]

NARRATIVE: CASE EVENT DATE: 20160306
